FAERS Safety Report 23500278 (Version 1)
Quarter: 2024Q1

REPORT INFORMATION
  Report Type: Report from Study
  Country: US (occurrence: US)
  Receive Date: 20240208
  Receipt Date: 20240208
  Transmission Date: 20240410
  Serious: Yes (Other)
  Sender: FDA-Public Use
  Company Number: US-INSMED, INC.-2024-00427-US

PATIENT
  Sex: Female

DRUGS (1)
  1. ARIKAYCE [Suspect]
     Active Substance: AMIKACIN
     Indication: Mycobacterial infection
     Dosage: 590 MILLIGRAM, QD
     Route: 055
     Dates: start: 20230420

REACTIONS (6)
  - Seizure [Unknown]
  - Dementia [Not Recovered/Not Resolved]
  - Tremor [Recovered/Resolved]
  - Sputum retention [Not Recovered/Not Resolved]
  - Incontinence [Unknown]
  - Drug intolerance [Unknown]
